FAERS Safety Report 21249911 (Version 4)
Quarter: 2022Q3

REPORT INFORMATION
  Report Type: Spontaneous
  Country: US (occurrence: US)
  Receive Date: 20220824
  Receipt Date: 20220929
  Transmission Date: 20221027
  Serious: Yes (Hospitalization, Other)
  Sender: FDA-Public Use
  Company Number: US-ALLERGAN-2227469US

PATIENT
  Sex: Female
  Weight: 63.5 kg

DRUGS (5)
  1. LILETTA [Suspect]
     Active Substance: LEVONORGESTREL
     Indication: Contraception
     Dosage: 52 MG, SINGLE
     Route: 015
     Dates: start: 2018, end: 20220817
  2. FLINTSTONES MULTIPLE VITAMINS [VITAMINS NOS] [Concomitant]
     Indication: Adjuvant therapy
     Dosage: SUPPLEMENT
  3. COVID-19 VACCINE [Concomitant]
     Dosage: UNK, SINGLE
     Route: 030
     Dates: start: 202111, end: 202111
  4. COVID-19 VACCINE [Concomitant]
     Dosage: UNK, SINGLE
     Route: 030
     Dates: start: 20210118, end: 20210118
  5. COVID-19 VACCINE [Concomitant]
     Dosage: UNK, SINGLE
     Route: 030
     Dates: start: 202012, end: 202012

REACTIONS (2)
  - Ectopic pregnancy [Unknown]
  - Drug ineffective [Unknown]

NARRATIVE: CASE EVENT DATE: 20220801
